FAERS Safety Report 18195695 (Version 2)
Quarter: 2020Q3

REPORT INFORMATION
  Report Type: Spontaneous
  Country: US (occurrence: US)
  Receive Date: 20200825
  Receipt Date: 20200921
  Transmission Date: 20201103
  Serious: No
  Sender: FDA-Public Use
  Company Number: US-PFIZER INC-2020326593

PATIENT
  Age: 40 Year
  Sex: Female

DRUGS (2)
  1. IBRANCE [Suspect]
     Active Substance: PALBOCICLIB
     Indication: BREAST CANCER FEMALE
     Dosage: 75 MG, CYCLIC [75 MG QD (ONCE DAILY) X21 DAYS Q (EVERY) 28 DAYS]
     Dates: start: 20191122
  2. IBRANCE [Suspect]
     Active Substance: PALBOCICLIB
     Dosage: 75 MG, CYCLIC [75 MG QD (ONCE DAILY) X21 DAYS Q (EVERY) 28 DAYS]
     Dates: start: 20200215

REACTIONS (1)
  - Fatigue [Unknown]
